FAERS Safety Report 4393543-0 (Version None)
Quarter: 2004Q3

REPORT INFORMATION
  Report Type: 
  Country: None (occurrence: None)
  Receive Date: 20040706
  Receipt Date: 20040706
  Transmission Date: 20050211
  Serious: Yes (Hospitalization)
  Sender: FDA-Public Use
  Company Number: None

PATIENT
  Age: 80 Year
  Sex: Male
  Weight: 108.4097 kg

DRUGS (2)
  1. CLOPIDOGREL     (BL700) [Suspect]
  2. ASA           (CN103) [Suspect]

REACTIONS (1)
  - LOWER GASTROINTESTINAL HAEMORRHAGE [None]
